FAERS Safety Report 9613178 (Version 1)
Quarter: 2013Q4

REPORT INFORMATION
  Report Type: Spontaneous
  Country: US (occurrence: US)
  Receive Date: 20131010
  Receipt Date: 20131010
  Transmission Date: 20140711
  Serious: Yes (Other)
  Sender: FDA-Public Use
  Company Number: US-TEVA-437251USA

PATIENT
  Sex: Female

DRUGS (1)
  1. ESTRADIOL [Suspect]

REACTIONS (6)
  - Coeliac disease [Unknown]
  - Tremor [Unknown]
  - Anxiety [Unknown]
  - Weight decreased [Unknown]
  - Abdominal pain upper [Unknown]
  - Pain [Unknown]
